FAERS Safety Report 17648526 (Version 1)
Quarter: 2020Q2

REPORT INFORMATION
  Report Type: Spontaneous
  Country: SK (occurrence: SK)
  Receive Date: 20200409
  Receipt Date: 20200409
  Transmission Date: 20200713
  Serious: Yes (Hospitalization)
  Sender: FDA-Public Use
  Company Number: SK-TEVA-2020-SK-1220114

PATIENT
  Age: 74 Year
  Sex: Female

DRUGS (1)
  1. AZITHROMYCIN ANHYDROUS. [Suspect]
     Active Substance: AZITHROMYCIN ANHYDROUS
     Dates: start: 2019, end: 2019

REACTIONS (1)
  - Frequent bowel movements [Recovered/Resolved]

NARRATIVE: CASE EVENT DATE: 2019
